FAERS Safety Report 7350245-6 (Version None)
Quarter: 2011Q1

REPORT INFORMATION
  Report Type: 
  Country: None (occurrence: None)
  Receive Date: 20110314
  Receipt Date: 20110309
  Transmission Date: 20110831
  Serious: Yes (Life-Threatening, Hospitalization, Other)
  Sender: FDA-Public Use
  Company Number: US-ASTRAZENECA-2011SE13473

PATIENT
  Sex: Male

DRUGS (2)
  1. SEROQUEL [Suspect]
     Route: 048
  2. LITHIUM CARBONATE [Concomitant]

REACTIONS (16)
  - PROSTATE CANCER [None]
  - ATTENTION DEFICIT/HYPERACTIVITY DISORDER [None]
  - COMPENSATION NEUROSIS [None]
  - ANXIETY [None]
  - SUICIDAL BEHAVIOUR [None]
  - BRAIN INJURY [None]
  - MEMORY IMPAIRMENT [None]
  - BRADYPHRENIA [None]
  - COMA [None]
  - DEPRESSION [None]
  - COGNITIVE DISORDER [None]
  - SUICIDE ATTEMPT [None]
  - SUICIDAL IDEATION [None]
  - DYSPHORIA [None]
  - DISTURBANCE IN ATTENTION [None]
  - AGITATION [None]
